FAERS Safety Report 12263850 (Version 1)
Quarter: 2016Q2

REPORT INFORMATION
  Report Type: Spontaneous
  Country: US (occurrence: US)
  Receive Date: 20160413
  Receipt Date: 20160413
  Transmission Date: 20160815
  Serious: No
  Sender: FDA-Public Use
  Company Number: US-JNJFOC-20160323116

PATIENT
  Age: 67 Year
  Sex: Female
  Weight: 59.42 kg

DRUGS (6)
  1. BISOPROL [Concomitant]
     Indication: HYPERTENSION
     Route: 065
  2. PLAVIX [Concomitant]
     Active Substance: CLOPIDOGREL BISULFATE
     Indication: HYPERTENSION
     Route: 065
  3. TYLENOL EXTRA STRENGTH [Suspect]
     Active Substance: ACETAMINOPHEN
     Indication: ARTHRALGIA
     Dosage: DOSE: 2 TABLETS, ONCE EVERY 6 HOURS
     Route: 048
  4. NEURONTIN [Concomitant]
     Active Substance: GABAPENTIN
     Indication: PRODUCT USED FOR UNKNOWN INDICATION
     Route: 065
  5. XANAX [Concomitant]
     Active Substance: ALPRAZOLAM
     Indication: ANXIETY
     Route: 065
  6. TRAMADOL. [Concomitant]
     Active Substance: TRAMADOL
     Indication: ARTHRALGIA
     Dosage: DOSE: 50 MG, PRN
     Route: 065

REACTIONS (4)
  - Poor quality drug administered [Recovered/Resolved]
  - Product physical issue [Unknown]
  - Choking sensation [Recovered/Resolved]
  - Foreign body [Recovered/Resolved]
